FAERS Safety Report 15450180 (Version 1)
Quarter: 2018Q4

REPORT INFORMATION
  Report Type: Spontaneous
  Country: US (occurrence: US)
  Receive Date: 20181001
  Receipt Date: 20181001
  Transmission Date: 20190204
  Serious: No
  Sender: FDA-Public Use
  Company Number: US-PFIZER INC-2018388363

PATIENT

DRUGS (1)
  1. ADVIL [Suspect]
     Active Substance: IBUPROFEN
     Dosage: 2 DF, UNK

REACTIONS (4)
  - Foreign body in respiratory tract [Unknown]
  - Oral disorder [Unknown]
  - Pharyngeal oedema [Unknown]
  - Dizziness [Unknown]

NARRATIVE: CASE EVENT DATE: 201809
